FAERS Safety Report 9201840 (Version 12)
Quarter: 2018Q4

REPORT INFORMATION
  Report Type: Report from Study
  Country: CA (occurrence: CA)
  Receive Date: 20130401
  Receipt Date: 20181231
  Transmission Date: 20190205
  Serious: Yes (Other)
  Sender: FDA-Public Use
  Company Number: CA-ROCHE-1170351

PATIENT
  Age: 60 Year
  Sex: Female
  Weight: 59 kg

DRUGS (16)
  1. FOLIC ACID. [Concomitant]
     Active Substance: FOLIC ACID
     Route: 065
  2. NAPROSYN EC [Concomitant]
     Route: 065
  3. QUININE [Concomitant]
     Active Substance: QUININE
     Route: 065
  4. METHOTREXATE. [Concomitant]
     Active Substance: METHOTREXATE
     Route: 048
  5. CYTOTEC [Concomitant]
     Active Substance: MISOPROSTOL
     Route: 065
  6. ACTEMRA [Suspect]
     Active Substance: TOCILIZUMAB
     Route: 042
     Dates: start: 20160708
  7. ACTEMRA [Suspect]
     Active Substance: TOCILIZUMAB
     Indication: RHEUMATOID ARTHRITIS
     Route: 058
     Dates: start: 20160413, end: 2016
  8. TYLENOL [Concomitant]
     Active Substance: ACETAMINOPHEN
     Route: 065
  9. ACTEMRA [Suspect]
     Active Substance: TOCILIZUMAB
     Indication: RHEUMATOID ARTHRITIS
     Route: 042
     Dates: start: 20110810, end: 20160323
  10. ADVIL [Concomitant]
     Active Substance: IBUPROFEN
  11. NEXIUM [Concomitant]
     Active Substance: ESOMEPRAZOLE MAGNESIUM
     Route: 065
  12. TRAMACET [Concomitant]
     Active Substance: ACETAMINOPHEN\TRAMADOL
  13. TUMS [Concomitant]
     Active Substance: CALCIUM CARBONATE
     Route: 065
  14. FLEXERIL [Concomitant]
     Active Substance: CYCLOBENZAPRINE HYDROCHLORIDE
     Dosage: 5-10 MG
     Route: 065
  15. ACTEMRA [Suspect]
     Active Substance: TOCILIZUMAB
     Dosage: INFUSION NO. 87
     Route: 042
     Dates: start: 20180619
  16. LYRICA [Concomitant]
     Active Substance: PREGABALIN
     Route: 065

REACTIONS (22)
  - Pain in jaw [Not Recovered/Not Resolved]
  - Nasopharyngitis [Unknown]
  - Abscess limb [Not Recovered/Not Resolved]
  - Injection site pruritus [Not Recovered/Not Resolved]
  - Tooth disorder [Unknown]
  - Bursitis [Not Recovered/Not Resolved]
  - Infection [Not Recovered/Not Resolved]
  - Pharyngitis [Unknown]
  - Fall [Unknown]
  - Injection site swelling [Not Recovered/Not Resolved]
  - Muscle strain [Not Recovered/Not Resolved]
  - Muscle rupture [Not Recovered/Not Resolved]
  - Blood pressure increased [Unknown]
  - Injection site erythema [Unknown]
  - Weight decreased [Recovered/Resolved]
  - Osteoarthritis [Unknown]
  - Spinal column stenosis [Not Recovered/Not Resolved]
  - Exostosis of jaw [Unknown]
  - Pain in extremity [Not Recovered/Not Resolved]
  - Spinal disorder [Not Recovered/Not Resolved]
  - Teeth brittle [Unknown]
  - Product administration error [Unknown]

NARRATIVE: CASE EVENT DATE: 2012
